FAERS Safety Report 21918526 (Version 1)
Quarter: 2023Q1

REPORT INFORMATION
  Report Type: Other
  Country: UG (occurrence: UG)
  Receive Date: 20230127
  Receipt Date: 20230127
  Transmission Date: 20230418
  Serious: Yes (Other)
  Sender: FDA-Public Use
  Company Number: UG-MACLEODS PHARMACEUTICALS US LTD-MAC2023039417

PATIENT

DRUGS (4)
  1. TENOFOVIR DISOPROXIL [Suspect]
     Active Substance: TENOFOVIR DISOPROXIL
     Indication: HIV infection
     Dosage: 300 MILLIGRAM, QD (1 COURSE DURING FIRST TRIMESTER, PRIOR TO CONCEPTION)
     Route: 048
     Dates: start: 20170119
  2. DOLUTEGRAVIR [Suspect]
     Active Substance: DOLUTEGRAVIR
     Indication: HIV infection
     Dosage: 50 MILLIGRAM, QD, (1 COURSE DURING FIRST TRIMESTER, PRIOR TO CONCEPTION)
     Route: 048
     Dates: start: 20170119
  3. LAMIVUDINE [Suspect]
     Active Substance: LAMIVUDINE
     Indication: HIV infection
     Dosage: 300 MILLIGRAM, QD, (1 COURSE DURING FIRST TRIMESTER, PRIOR TO CONCEPTION YES)
     Route: 048
     Dates: start: 20170119
  4. COTRIMOXAZOLE [Suspect]
     Active Substance: SULFAMETHOXAZOLE\TRIMETHOPRIM
     Indication: Product used for unknown indication
     Dosage: UNK, PRIOR TO CONCEPTION
     Route: 065

REACTIONS (2)
  - Abortion spontaneous [Unknown]
  - Maternal exposure during pregnancy [Unknown]
